FAERS Safety Report 6615871-8 (Version None)
Quarter: 2010Q1

REPORT INFORMATION
  Report Type: 
  Country: None (occurrence: None)
  Receive Date: 20100305
  Receipt Date: 20100223
  Transmission Date: 20100710
  Serious: Yes (Death)
  Sender: FDA-Public Use
  Company Number: UA-ABBOTT-10P-269-0619592-00

PATIENT
  Age: 77 Year
  Sex: Male
  Weight: 78 kg

DRUGS (5)
  1. LUCRIN DEPOT [Suspect]
     Indication: PROSTATE CANCER
     Route: 058
     Dates: start: 20090605, end: 20091221
  2. TRIMETAZIDINUM [Concomitant]
     Indication: CORONARY ARTERY DISEASE
     Route: 048
     Dates: start: 20090601, end: 20100109
  3. CARDIOMAGNYL [Concomitant]
     Indication: CORONARY ARTERY DISEASE
     Route: 048
     Dates: start: 20090901, end: 20100109
  4. OMIKS [Concomitant]
     Indication: URINARY TRACT DISORDER
     Route: 048
     Dates: start: 20090901, end: 20100109
  5. ATOXIL [Concomitant]
     Indication: BLOOD CREATININE INCREASED
     Route: 048
     Dates: start: 20091201, end: 20100109

REACTIONS (3)
  - BLOOD CREATININE INCREASED [None]
  - BLOOD UREA INCREASED [None]
  - RENAL FAILURE [None]
